FAERS Safety Report 26194529 (Version 1)
Quarter: 2025Q4

REPORT INFORMATION
  Report Type: Spontaneous
  Country: JP (occurrence: JP)
  Receive Date: 20251224
  Receipt Date: 20251224
  Transmission Date: 20260117
  Serious: Yes (Death)
  Sender: MERCK SHARP & DOHME LLC
  Company Number: JP-009507513-2363425

PATIENT
  Age: 8 Decade
  Sex: Male

DRUGS (3)
  1. KEYTRUDA [Suspect]
     Active Substance: PEMBROLIZUMAB
     Indication: Oesophageal carcinoma
     Dosage: 6 COURSES
     Route: 041
     Dates: start: 202508, end: 202512
  2. CISPLATIN [Suspect]
     Active Substance: CISPLATIN
     Indication: Oesophageal carcinoma
     Route: 041
     Dates: start: 202508, end: 202512
  3. FLUOROURACIL [Suspect]
     Active Substance: FLUOROURACIL
     Indication: Oesophageal carcinoma
     Dosage: 800 MG/M? ONCE DAILY, ADMINISTERED AS A CONTINUOUS INFUSION FOR 5 DAYS, REPEATED EVERY 3 WEEKS
     Route: 041
     Dates: start: 202508, end: 202512

REACTIONS (3)
  - Death [Fatal]
  - Dyspnoea [Unknown]
  - Decreased appetite [Unknown]

NARRATIVE: CASE EVENT DATE: 20250101
